FAERS Safety Report 4597837-5 (Version None)
Quarter: 2005Q1

REPORT INFORMATION
  Report Type: 
  Country: None (occurrence: None)
  Receive Date: 20050125
  Receipt Date: 20041019
  Transmission Date: 20050727
  Serious: No
  Sender: FDA-Public Use
  Company Number: USA030227882

PATIENT
  Age: 76 Year
  Sex: Female
  Weight: 45 kg

DRUGS (4)
  1. FORTEO [Suspect]
     Indication: OSTEOPOROSIS
     Dosage: 20 UG/1 DAY
     Dates: start: 20020204
  2. CALCIUM GLUCONATE [Concomitant]
  3. INDERAL [Concomitant]
  4. ATENOLOL [Concomitant]

REACTIONS (8)
  - ACCIDENTAL NEEDLE STICK [None]
  - BACK PAIN [None]
  - DIFFICULTY IN WALKING [None]
  - DIZZINESS [None]
  - HEADACHE [None]
  - INJECTION SITE ERYTHEMA [None]
  - INJECTION SITE HAEMORRHAGE [None]
  - TOOTHACHE [None]
